FAERS Safety Report 18899206 (Version 5)
Quarter: 2021Q2

REPORT INFORMATION
  Report Type: Report from Study
  Country: US (occurrence: US)
  Receive Date: 20210216
  Receipt Date: 20210616
  Transmission Date: 20210717
  Serious: Yes (Other)
  Sender: FDA-Public Use
  Company Number: NVSC2021US036575

PATIENT
  Age: 56 Year
  Sex: Female
  Weight: 95.24 kg

DRUGS (2)
  1. ENTRESTO [Suspect]
     Active Substance: SACUBITRIL\VALSARTAN
     Dosage: 1 DF, BID
     Route: 048
  2. ENTRESTO [Suspect]
     Active Substance: SACUBITRIL\VALSARTAN
     Indication: PRODUCT USED FOR UNKNOWN INDICATION
     Dosage: 200 MG, BID (97/103 MG)
     Route: 048

REACTIONS (7)
  - Visual impairment [Recovering/Resolving]
  - Conjunctival haemorrhage [Not Recovered/Not Resolved]
  - Somnolence [Unknown]
  - Chest pain [Recovering/Resolving]
  - Retinal vein occlusion [Unknown]
  - Blindness [Unknown]
  - Vision blurred [Unknown]

NARRATIVE: CASE EVENT DATE: 20210209
